FAERS Safety Report 13877285 (Version 1)
Quarter: 2017Q3

REPORT INFORMATION
  Report Type: Spontaneous
  Country: DE (occurrence: DE)
  Receive Date: 20170817
  Receipt Date: 20170817
  Transmission Date: 20171127
  Serious: Yes (Hospitalization)
  Sender: FDA-Public Use
  Company Number: DE-TEVA-795564GER

PATIENT
  Age: 22 Year
  Sex: Male

DRUGS (1)
  1. FINASTERID ABZ 1 MG FILMTABLETTEN [Suspect]
     Active Substance: FINASTERIDE
     Route: 048
     Dates: start: 201707

REACTIONS (4)
  - Nausea [Unknown]
  - Dyspnoea [Unknown]
  - Depression [Unknown]
  - Abdominal discomfort [Unknown]

NARRATIVE: CASE EVENT DATE: 2017
